FAERS Safety Report 9830793 (Version 10)
Quarter: 2015Q1

REPORT INFORMATION
  Report Type: Spontaneous
  Country: US (occurrence: US)
  Receive Date: 20140120
  Receipt Date: 20150128
  Transmission Date: 20150721
  Serious: Yes (Hospitalization, Disabling)
  Sender: FDA-Public Use
  Company Number: US-ACTELION-A-US2014-93891

PATIENT
  Age: 65 Year
  Sex: Female

DRUGS (2)
  1. COUMADIN [Concomitant]
     Active Substance: WARFARIN SODIUM
  2. OPSUMIT [Suspect]
     Active Substance: MACITENTAN
     Indication: PULMONARY ARTERIAL HYPERTENSION
     Dosage: 10 MG, QD
     Route: 048
     Dates: start: 20140128

REACTIONS (9)
  - Chronic obstructive pulmonary disease [Recovering/Resolving]
  - Dyspnoea [Unknown]
  - Pulmonary oedema [Recovering/Resolving]
  - Pneumonia [Unknown]
  - Cardiac failure congestive [Recovering/Resolving]
  - Malaise [Recovering/Resolving]
  - Peripheral swelling [Unknown]
  - Influenza [Unknown]
  - Drug dose omission [Unknown]

NARRATIVE: CASE EVENT DATE: 20140210
